FAERS Safety Report 13767175 (Version 1)
Quarter: 2017Q3

REPORT INFORMATION
  Report Type: Spontaneous
  Country: GB (occurrence: GB)
  Receive Date: 20170719
  Receipt Date: 20170719
  Transmission Date: 20171127
  Serious: Yes (Death, Hospitalization)
  Sender: FDA-Public Use
  Company Number: GB-ACCORD-053636

PATIENT
  Age: 70 Year
  Sex: Male
  Weight: 70.2 kg

DRUGS (3)
  1. PEMETREXED. [Suspect]
     Active Substance: PEMETREXED
     Indication: PLEURAL MESOTHELIOMA MALIGNANT
     Route: 042
     Dates: start: 20161013, end: 20161103
  2. AMATUXIMAB [Suspect]
     Active Substance: AMATUXIMAB
     Indication: PLEURAL MESOTHELIOMA MALIGNANT
     Route: 042
     Dates: start: 20161013, end: 20161103
  3. CISPLATIN. [Suspect]
     Active Substance: CISPLATIN
     Indication: PLEURAL MESOTHELIOMA MALIGNANT
     Route: 042
     Dates: start: 20161013, end: 20161103

REACTIONS (4)
  - Nausea [Recovered/Resolved]
  - Dyspnoea [Recovered/Resolved]
  - Malignant neoplasm progression [Fatal]
  - Vomiting [Recovered/Resolved]

NARRATIVE: CASE EVENT DATE: 20161015
